FAERS Safety Report 26100489 (Version 1)
Quarter: 2025Q4

REPORT INFORMATION
  Report Type: Spontaneous
  Country: EU (occurrence: EU)
  Receive Date: 20251128
  Receipt Date: 20251128
  Transmission Date: 20260117
  Serious: Yes (Life-Threatening)
  Sender: ALEXION PHARMACEUTICALS
  Company Number: None

PATIENT
  Age: 51 Year
  Sex: Male
  Weight: 100 kg

DRUGS (16)
  1. TICAGRELOR [Suspect]
     Active Substance: TICAGRELOR
     Indication: Thrombosis prophylaxis
     Dosage: 90 MG 2X/J
     Dates: start: 20250926, end: 20251006
  2. DEXMEDETOMIDINE [Suspect]
     Active Substance: DEXMEDETOMIDINE
     Indication: Sedation
     Dosage: 1.4 ?G/KG/H
     Dates: start: 20250929, end: 20251006
  3. CHLORPROMAZINE [Concomitant]
     Active Substance: CHLORPROMAZINE
     Indication: Agitation
     Dates: start: 20251001, end: 20251006
  4. PROPOFOL [Concomitant]
     Active Substance: PROPOFOL
     Indication: Sedation
     Dosage: 280MG/H
     Dates: start: 20250926, end: 20251010
  5. OXAZEPAM [Concomitant]
     Active Substance: OXAZEPAM
     Indication: Anxiety
     Dosage: VOIE NASOGASTRIQUE
     Dates: start: 20251001, end: 20251006
  6. ACETAMINOPHEN [Concomitant]
     Active Substance: ACETAMINOPHEN
     Indication: Pain
     Dosage: SI BESOIN
     Dates: start: 20250926, end: 20251013
  7. SUFENTANIL [Concomitant]
     Active Substance: SUFENTANIL
     Indication: Sedation
     Dosage: 5 ?G/ML
     Dates: start: 20250926, end: 20251001
  8. SUFENTANIL [Concomitant]
     Active Substance: SUFENTANIL
     Dosage: 5?G/ML
     Dates: start: 20251006, end: 20251010
  9. NICOTINE [Concomitant]
     Active Substance: NICOTINE
     Indication: Tobacco withdrawal symptoms
     Dates: start: 20251005, end: 20251020
  10. NICARDIPINE [Concomitant]
     Active Substance: NICARDIPINE
     Indication: Hypertension
     Dates: start: 20251005, end: 20251013
  11. PIPERACILLIN SODIUM [Concomitant]
     Active Substance: PIPERACILLIN SODIUM
     Indication: Antibiotic therapy
     Dates: start: 20251006, end: 20251011
  12. HEPARIN [Concomitant]
     Active Substance: HEPARIN SODIUM
     Indication: Thrombosis prophylaxis
     Dates: start: 20250930, end: 20251006
  13. CLOPIDOGREL [Concomitant]
     Active Substance: CLOPIDOGREL BISULFATE
     Indication: Thrombosis prophylaxis
     Dates: start: 20251006, end: 20251006
  14. KARDEGIC [Concomitant]
     Active Substance: ASPIRIN DL-LYSINE
     Indication: Cardiovascular event prophylaxis
     Dosage: SONDE NG
     Dates: start: 20250926, end: 20251020
  15. LANSOPRAZOLE [Concomitant]
     Active Substance: LANSOPRAZOLE
     Indication: Gastrooesophageal reflux disease
     Dosage: SONDE NG
     Dates: start: 20250929, end: 20251007
  16. ATORVASTATIN [Concomitant]
     Active Substance: ATORVASTATIN
     Indication: Cardiovascular event prophylaxis
     Dosage: SONDE NG
     Dates: start: 20251006, end: 20251020

REACTIONS (1)
  - Cardiac arrest [Recovered/Resolved]

NARRATIVE: CASE EVENT DATE: 20251005
